FAERS Safety Report 8967344 (Version 2)
Quarter: 2014Q2

REPORT INFORMATION
  Report Type: Spontaneous
  Country: GB (occurrence: GB)
  Receive Date: 20121214
  Receipt Date: 20131120
  Transmission Date: 20141212
  Serious: Yes (Hospitalization)
  Sender: FDA-Public Use
  Company Number: GB-TEVA-374828ISR

PATIENT
  Age: 56 Year
  Sex: Female
  Weight: 62 kg

DRUGS (3)
  1. CARBOPLATIN [Suspect]
     Indication: OVARIAN CANCER
     Dosage: 33.333MG (EQUIVALENT DAILY DOSE)
     Route: 042
     Dates: start: 20110518
  2. PACLITAXEL [Suspect]
     Indication: OVARIAN CANCER
     Dosage: 11.1429MG (EQUIVALENT DAILY DOSE)
     Route: 042
     Dates: start: 20110518
  3. FARLETUZUMAB [Suspect]
     Indication: OVARIAN CANCER
     Route: 042
     Dates: start: 20110518

REACTIONS (7)
  - Fatigue [Recovered/Resolved]
  - Blood alkaline phosphatase increased [Recovered/Resolved]
  - Blood creatinine decreased [Recovered/Resolved]
  - Haematocrit decreased [Recovered/Resolved]
  - Haemoglobin decreased [Recovered/Resolved]
  - Neutrophil count decreased [Recovered/Resolved]
  - Red blood cell count decreased [Recovered/Resolved]
